FAERS Safety Report 21859414 (Version 1)
Quarter: 2023Q1

REPORT INFORMATION
  Report Type: Spontaneous
  Country: US (occurrence: None)
  Receive Date: 20230112
  Receipt Date: 20230112
  Transmission Date: 20230418
  Serious: Yes (Other)
  Sender: FDA-Public Use
  Company Number: None

PATIENT
  Age: 67 Year
  Sex: Male
  Weight: 94.5 kg

DRUGS (8)
  1. TOLTERODINE TARTRATE [Suspect]
     Active Substance: TOLTERODINE TARTRATE
     Indication: Pollakiuria
     Dosage: FREQUENCY : DAILY;?
     Route: 048
     Dates: start: 20220802, end: 20221202
  2. LISINOPRIL [Concomitant]
     Active Substance: LISINOPRIL
  3. TRAVOPROST [Concomitant]
     Active Substance: TRAVOPROST
  4. TIMOLOL MALEATE [Concomitant]
     Active Substance: TIMOLOL MALEATE
  5. BRIMONIDINE TARTRATE [Concomitant]
     Active Substance: BRIMONIDINE TARTRATE
  6. daily multiple vitamin [Concomitant]
  7. RED YEAST RICE [Concomitant]
  8. NIACINAMIDE [Concomitant]
     Active Substance: NIACINAMIDE

REACTIONS (1)
  - Drug ineffective [None]

NARRATIVE: CASE EVENT DATE: 20220802
